FAERS Safety Report 4836582-5 (Version None)
Quarter: 2005Q4

REPORT INFORMATION
  Report Type: 
  Country: None (occurrence: None)
  Receive Date: 20051121
  Receipt Date: 20051108
  Transmission Date: 20060501
  Serious: Yes (Hospitalization, Other)
  Sender: FDA-Public Use
  Company Number: 2005153520

PATIENT
  Age: 26 Year
  Sex: Male

DRUGS (4)
  1. LYRICA [Suspect]
     Indication: COMPLEX REGIONAL PAIN SYNDROME
     Dosage: 50 (25 MG, 1 IN 1 D)
     Dates: start: 20051101, end: 20051106
  2. OXYCONTIN [Concomitant]
  3. OXYCODONE (OXYCODONE) [Concomitant]
  4. SOMA [Concomitant]

REACTIONS (4)
  - DEPRESSED LEVEL OF CONSCIOUSNESS [None]
  - DIFFICULTY IN WALKING [None]
  - FALL [None]
  - UNRESPONSIVE TO PAIN STIMULI [None]
